FAERS Safety Report 9099612 (Version 1)
Quarter: 2013Q1

REPORT INFORMATION
  Report Type: Spontaneous
  Country: VE (occurrence: VE)
  Receive Date: 20130214
  Receipt Date: 20130214
  Transmission Date: 20140127
  Serious: Yes (Death)
  Sender: FDA-Public Use
  Company Number: PHHY2013VE013325

PATIENT
  Age: 71 Year
  Sex: Male

DRUGS (1)
  1. LEPONEX [Suspect]
     Indication: SCHIZOPHRENIA
     Dosage: 100 MG, ONCE DAILY
     Route: 048
     Dates: start: 19931114, end: 20130117

REACTIONS (1)
  - Respiratory arrest [Fatal]
